FAERS Safety Report 9807907 (Version 1)
Quarter: 2014Q1

REPORT INFORMATION
  Report Type: Spontaneous
  Country: US (occurrence: US)
  Receive Date: 20140110
  Receipt Date: 20140110
  Transmission Date: 20141002
  Serious: Yes (Death)
  Sender: FDA-Public Use
  Company Number: US-ASTRAZENECA-2014SE01951

PATIENT
  Age: 49 Year
  Sex: Female

DRUGS (4)
  1. QUETIAPINE [Suspect]
     Route: 048
  2. CLONAZEPAM [Suspect]
     Route: 048
  3. ZIPRASIDONE [Suspect]
     Route: 048
  4. ESZOPICLONE [Suspect]
     Route: 048

REACTIONS (2)
  - Toxicity to various agents [Fatal]
  - Completed suicide [Fatal]
